FAERS Safety Report 5281121-0 (Version None)
Quarter: 2007Q1

REPORT INFORMATION
  Report Type: 
  Country: None (occurrence: None)
  Receive Date: 20070323
  Receipt Date: 20070314
  Transmission Date: 20070707
  Serious: Yes (Hospitalization, Other)
  Sender: FDA-Public Use
  Company Number: 236157

PATIENT
  Age: 77 Year
  Sex: Male
  Weight: 82 kg

DRUGS (6)
  1. MABTHERA (RITUXIMAB) CONC FOR SOLUTION FOR INFUSION [Suspect]
     Indication: NON-HODGKIN'S LYMPHOMA
     Dosage: SEE IMAGE
     Dates: start: 20040901, end: 20041201
  2. MABTHERA (RITUXIMAB) CONC FOR SOLUTION FOR INFUSION [Suspect]
     Indication: NON-HODGKIN'S LYMPHOMA
     Dosage: SEE IMAGE
     Dates: start: 20050101, end: 20050317
  3. FLUDARABINE PHOSPHATE [Suspect]
     Indication: NON-HODGKIN'S LYMPHOMA
     Dosage: 38 MG, Q3W, UNK
     Dates: start: 20040908, end: 20041203
  4. MITOXANTRONE [Suspect]
     Indication: NON-HODGKIN'S LYMPHOMA
     Dosage: 9 MG, Q3W, UNK
     Dates: start: 20040908, end: 20041203
  5. CYCLOPHOSPHAMIDE [Suspect]
     Indication: NON-HODGKIN'S LYMPHOMA
     Dosage: 283 MG, Q3W, UNK
     Dates: start: 20040908, end: 20041203
  6. ALLOPURINOL [Concomitant]

REACTIONS (1)
  - PULMONARY FIBROSIS [None]
